FAERS Safety Report 13102360 (Version 1)
Quarter: 2017Q1

REPORT INFORMATION
  Report Type: Report from Study
  Country: US (occurrence: US)
  Receive Date: 20170110
  Receipt Date: 20170110
  Transmission Date: 20170428
  Serious: No
  Sender: FDA-Public Use
  Company Number: US-ALEXION PHARMACEUTICALS INC.-A201700017

PATIENT
  Sex: Female

DRUGS (1)
  1. STRENSIQ [Suspect]
     Active Substance: ASFOTASE ALFA
     Indication: HYPOPHOSPHATASIA
     Dosage: UNK
     Route: 058

REACTIONS (13)
  - Dyspnoea [Unknown]
  - Vomiting [Unknown]
  - Injection site bruising [Unknown]
  - Pharyngeal erythema [Unknown]
  - Skin discolouration [Unknown]
  - Feeling abnormal [Unknown]
  - Thirst [Unknown]
  - Erythema [Unknown]
  - Tremor [Unknown]
  - Injection site pain [Unknown]
  - Wheezing [Unknown]
  - Abdominal pain upper [Unknown]
  - Chills [Unknown]

NARRATIVE: CASE EVENT DATE: 20170102
